FAERS Safety Report 15670431 (Version 1)
Quarter: 2018Q4

REPORT INFORMATION
  Report Type: Spontaneous
  Country: US (occurrence: US)
  Receive Date: 20181129
  Receipt Date: 20181129
  Transmission Date: 20190205
  Serious: Yes (Hospitalization)
  Sender: FDA-Public Use
  Company Number: US-PFIZER INC-2018489026

PATIENT
  Age: 76 Year
  Sex: Male
  Weight: 106.5 kg

DRUGS (1)
  1. LYRICA [Suspect]
     Active Substance: PREGABALIN
     Indication: NEUROPATHY PERIPHERAL
     Dosage: 150 MG, 4X/DAY
     Route: 048

REACTIONS (2)
  - Fall [Recovered/Resolved with Sequelae]
  - Joint injury [Unknown]

NARRATIVE: CASE EVENT DATE: 201809
